FAERS Safety Report 7863838-4 (Version None)
Quarter: 2011Q4

REPORT INFORMATION
  Report Type: 
  Country: None (occurrence: None)
  Receive Date: 20111028
  Receipt Date: 20111021
  Transmission Date: 20120403
  Serious: No
  Sender: FDA-Public Use
  Company Number: US-BIOGENIDEC-2011BI001227

PATIENT
  Age: 33 Year
  Sex: Male

DRUGS (4)
  1. TYSABRI [Suspect]
     Indication: MULTIPLE SCLEROSIS
     Route: 042
     Dates: start: 20101214, end: 20110801
  2. VALIUM [Concomitant]
  3. ATIVAN [Concomitant]
  4. MEDICATION (NOS) [Concomitant]
     Indication: CONVULSION

REACTIONS (6)
  - DRUG ABUSE [None]
  - DEPRESSION [None]
  - ANXIETY [None]
  - DYSPHEMIA [None]
  - BALANCE DISORDER [None]
  - HEADACHE [None]
